FAERS Safety Report 6906491-6 (Version None)
Quarter: 2010Q3

REPORT INFORMATION
  Report Type: 
  Country: None (occurrence: None)
  Receive Date: 20100804
  Receipt Date: 20100723
  Transmission Date: 20110219
  Serious: Yes (Hospitalization)
  Sender: FDA-Public Use
  Company Number: JP-PFIZER INC-2010092747

PATIENT
  Age: 77 Year
  Sex: Male

DRUGS (11)
  1. LYRICA [Suspect]
     Indication: POST HERPETIC NEURALGIA
     Dosage: 150MG/DAY
     Route: 048
     Dates: start: 20100702
  2. MYSLEE [Concomitant]
     Dosage: UNK
  3. BENZALIN [Concomitant]
     Dosage: UNK
  4. OLMESARTAN MEDOXOMIL [Concomitant]
     Dosage: UNK
  5. URINORM [Concomitant]
     Dosage: UNK
  6. AMLODIPINE BESYLATE [Concomitant]
     Dosage: UNK
  7. JUVELA [Concomitant]
     Dosage: UNK
  8. METHYCOBAL [Concomitant]
  9. DAI-KENCHU-TO [Concomitant]
  10. BUFFERIN [Concomitant]
  11. ACETYLSALICYLIC ACID [Concomitant]
     Dosage: UNK

REACTIONS (2)
  - DIZZINESS [None]
  - FALL [None]
